FAERS Safety Report 24173059 (Version 3)
Quarter: 2024Q3

REPORT INFORMATION
  Report Type: Spontaneous
  Country: US (occurrence: US)
  Receive Date: 20240805
  Receipt Date: 20240906
  Transmission Date: 20241017
  Serious: Yes (Hospitalization, Other)
  Sender: BAYER
  Company Number: US-BAYER-2024A109951

PATIENT
  Age: 25 Year
  Sex: Female
  Weight: 56.7 kg

DRUGS (2)
  1. KYLEENA [Suspect]
     Active Substance: LEVONORGESTREL
     Indication: Contraception
     Dosage: 17.5?G/DAY
     Route: 015
     Dates: start: 20200508, end: 20240509
  2. MISOPROSTOL [Concomitant]
     Active Substance: MISOPROSTOL

REACTIONS (12)
  - Ectopic pregnancy with contraceptive device [Recovered/Resolved]
  - Abortion of ectopic pregnancy [None]
  - Haemorrhage in pregnancy [Not Recovered/Not Resolved]
  - Drug ineffective [None]
  - Asthenia [None]
  - Device expulsion [Recovered/Resolved]
  - Abdominal pain lower [Not Recovered/Not Resolved]
  - Ovarian cyst [None]
  - Vaginal discharge [None]
  - Pelvic pain [None]
  - Fatigue [None]
  - Generalised anxiety disorder [None]
